FAERS Safety Report 7109931-5 (Version None)
Quarter: 2010Q4

REPORT INFORMATION
  Report Type: 
  Country: None (occurrence: None)
  Receive Date: 20101116
  Receipt Date: 20101116
  Transmission Date: 20110411
  Serious: No
  Sender: FDA-Public Use
  Company Number: None

PATIENT
  Age: 52 Year
  Sex: Male
  Weight: 72.5755 kg

DRUGS (1)
  1. TACLONEX SCALP [Suspect]
     Indication: PSORIASIS
     Dosage: 1-2 TIMES/DAY CUTANEOUS
     Route: 003
     Dates: start: 20100726, end: 20100728

REACTIONS (2)
  - LYMPHADENOPATHY [None]
  - PAIN IN EXTREMITY [None]
